FAERS Safety Report 16640945 (Version 2)
Quarter: 2019Q3

REPORT INFORMATION
  Report Type: Report from Study
  Country: US (occurrence: US)
  Receive Date: 20190729
  Receipt Date: 20190829
  Transmission Date: 20191004
  Serious: Yes (Death)
  Sender: FDA-Public Use
  Company Number: US-ROCHE-2364925

PATIENT

DRUGS (2)
  1. OBINUTUZUMAB. [Suspect]
     Active Substance: OBINUTUZUMAB
     Indication: DIFFUSE LARGE B-CELL LYMPHOMA
     Dosage: DATE OF MOST RECENT DOSE: 14/SEP/2018
     Route: 042
     Dates: start: 20180914
  2. VENETOCLAX. [Suspect]
     Active Substance: VENETOCLAX
     Indication: DIFFUSE LARGE B-CELL LYMPHOMA
     Dosage: AT VARYING DOSES OF 200-800MG (BASED UPON ASSIGNED DOSE LEVEL); EVERY 21 DAYS FOR UP TO 6 CYCLES, OR
     Route: 048
     Dates: start: 20180915

REACTIONS (1)
  - Disease progression [Fatal]

NARRATIVE: CASE EVENT DATE: 20181228
